FAERS Safety Report 5323970-6 (Version None)
Quarter: 2007Q2

REPORT INFORMATION
  Report Type: 
  Country: None (occurrence: None)
  Receive Date: 20070221
  Receipt Date: 20060306
  Transmission Date: 20071010
  Serious: Yes (Other)
  Sender: FDA-Public Use
  Company Number: PHEH2006US03006

PATIENT

DRUGS (1)
  1. DIOVAN [Suspect]
     Dates: start: 20050101

REACTIONS (1)
  - ANGIOEDEMA [None]
